FAERS Safety Report 10685039 (Version 1)
Quarter: 2014Q4

REPORT INFORMATION
  Report Type: Spontaneous
  Country: CA (occurrence: None)
  Receive Date: 20141229
  Receipt Date: 20141229
  Transmission Date: 20150529
  Serious: Yes (Hospitalization, Other)
  Sender: FDA-Public Use
  Company Number: ADR-2014-02434

PATIENT
  Age: 41 Year
  Sex: Female
  Weight: 44 kg

DRUGS (5)
  1. BACLOFEN. [Suspect]
     Active Substance: BACLOFEN
  2. IFNB1A [Suspect]
     Active Substance: INTERFERON BETA-1A
     Indication: MULTIPLE SCLEROSIS
  3. GABAPENTIN. [Suspect]
     Active Substance: GABAPENTIN
  4. NABILONE [Suspect]
     Active Substance: NABILONE
  5. CELECOXIB. [Suspect]
     Active Substance: CELECOXIB

REACTIONS (10)
  - Thrombotic microangiopathy [None]
  - Haemodialysis [None]
  - Thrombocytopenia [None]
  - Left ventricular dysfunction [None]
  - Haemolytic anaemia [None]
  - Chronic kidney disease [None]
  - Hypertension [None]
  - Generalised tonic-clonic seizure [None]
  - Posterior reversible encephalopathy syndrome [None]
  - Stress cardiomyopathy [None]

NARRATIVE: CASE EVENT DATE: 20140116
